FAERS Safety Report 18044428 (Version 1)
Quarter: 2020Q3

REPORT INFORMATION
  Report Type: Spontaneous
  Country: PL (occurrence: PL)
  Receive Date: 20200720
  Receipt Date: 20200720
  Transmission Date: 20201103
  Serious: Yes (Other)
  Sender: FDA-Public Use
  Company Number: PL-PFIZER INC-2020270781

PATIENT
  Weight: 82 kg

DRUGS (3)
  1. SUTENT [Suspect]
     Active Substance: SUNITINIB MALATE
     Dosage: 25 MG, CYCLIC (50 MG PER DAY?COURSE 1; 37.5 MG PER DAY COURSE 2?5; 25 MG PER DAY COURSE 6?10))
     Route: 048
  2. SUTENT [Suspect]
     Active Substance: SUNITINIB MALATE
     Indication: RENAL CELL CARCINOMA
     Dosage: 50 MG, CYCLIC (50 MG PER DAY?COURSE 1; 37.5 MG PER DAY COURSE 2?5; 25 MG PER DAY COURSE 6?10)
     Route: 048
  3. SUTENT [Suspect]
     Active Substance: SUNITINIB MALATE
     Dosage: 37.5 MG, CYCLIC (50 MG PER DAY?COURSE 1; 37.5 MG PER DAY COURSE 2?5; 25 MG PER DAY COURSE 6?10)
     Route: 048

REACTIONS (17)
  - Aspartate aminotransferase increased [Unknown]
  - Taste disorder [Unknown]
  - Contusion [Unknown]
  - Alanine aminotransferase increased [Unknown]
  - Decreased appetite [Unknown]
  - Anaemia [Unknown]
  - Thrombocytopenia [Unknown]
  - Musculoskeletal pain [Unknown]
  - Blood pressure increased [Unknown]
  - Chronic kidney disease [Unknown]
  - Neutropenia [Unknown]
  - Upper respiratory tract infection bacterial [Unknown]
  - Abdominal pain [Unknown]
  - Diarrhoea [Unknown]
  - Weight decreased [Unknown]
  - Leukopenia [Unknown]
  - Asthenia [Unknown]
